FAERS Safety Report 7573297 (Version 2)
Quarter: 2012Q4

REPORT INFORMATION
  Report Type: 
  Country: CA (occurrence: CA)
  Receive Date: 20100903
  Receipt Date: 20120927
  Transmission Date: 20130627
  Serious: Yes (Other)
  Sender: FDA-Public Use
  Company Number: PHHY2010CA55920

PATIENT
  Age: 80 Year
  Sex: Female

DRUGS (4)
  1. ACLASTA [Suspect]
     Indication: OSTEOPOROSIS
     Route: 042
     Dates: start: 20090917
  2. ACLASTA [Suspect]
     Route: 042
     Dates: start: 20100907
  3. ACLASTA [Suspect]
     Route: 042
     Dates: start: 20110907
  4. ACLASTA [Suspect]
     Route: 042
     Dates: start: 20120719

REACTIONS (5)
  - Escherichia infection [Unknown]
  - Urinary tract infection [Unknown]
  - Nasal congestion [Recovered/Resolved]
  - Fatigue [Unknown]
  - Pain [Recovered/Resolved]
